FAERS Safety Report 8868423 (Version 1)
Quarter: 2012Q4

REPORT INFORMATION
  Report Type: 
  Country: US (occurrence: US)
  Receive Date: 20121025
  Receipt Date: 20121025
  Transmission Date: 20130627
  Serious: No
  Sender: FDA-Public Use
  Company Number: US-AMGEN-USASP2012019706

PATIENT
  Age: 64 Year
  Sex: Female

DRUGS (18)
  1. ENBREL [Suspect]
     Indication: RHEUMATOID ARTHRITIS
     Dosage: 50 mg, qwk
     Dates: start: 201203
  2. ASPIRIN [Concomitant]
     Dosage: UNK mg, UNK
  3. VITAMIN C                          /00008001/ [Concomitant]
     Dosage: UNK
  4. VITAMIN D /00107901/ [Concomitant]
     Dosage: UNK
  5. VITAMIN E                          /00110501/ [Concomitant]
     Dosage: UNK
  6. MULTIVITAMIN                       /00097801/ [Concomitant]
  7. ALBUTEROL                          /00139501/ [Concomitant]
     Dosage: UNK
  8. PREMARIN [Concomitant]
     Dosage: UNK
  9. LASIX                              /00032601/ [Concomitant]
     Dosage: UNK
  10. RECLAST [Concomitant]
     Dosage: UNK
  11. ARAVA [Concomitant]
     Dosage: UNK
  12. SEREVENT [Concomitant]
     Dosage: UNK
  13. CETIRIZINE [Concomitant]
     Dosage: UNK
  14. SPIRIVA [Concomitant]
     Dosage: UNK
  15. MAGNESIUM [Concomitant]
     Dosage: UNK
  16. SALSALATE [Concomitant]
     Dosage: UNK
  17. CALCIUM [Concomitant]
     Dosage: UNK
  18. ACIPHEX [Concomitant]
     Dosage: UNK

REACTIONS (2)
  - Injection site pain [Unknown]
  - Injection site bruising [Unknown]
